FAERS Safety Report 20643271 (Version 2)
Quarter: 2022Q1

REPORT INFORMATION
  Report Type: Spontaneous
  Country: FR (occurrence: FR)
  Receive Date: 20220328
  Receipt Date: 20220331
  Transmission Date: 20220423
  Serious: Yes (Death)
  Sender: FDA-Public Use
  Company Number: None

PATIENT
  Age: 73 Year
  Sex: Female
  Weight: 36.6 kg

DRUGS (5)
  1. METHOTREXATE [Suspect]
     Active Substance: METHOTREXATE
     Indication: Central nervous system lymphoma
     Dosage: UNK (1- C1J1 R-MPV 23/09/2021)
     Route: 042
     Dates: start: 20210923, end: 20220104
  2. CYTARABINE [Suspect]
     Active Substance: CYTARABINE
     Indication: Central nervous system lymphoma
     Dosage: 8 GRAM (5- CONSOLIDATION C1J1 R-ARACYTIN)
     Route: 042
     Dates: start: 20220117, end: 20220119
  3. RITUXIMAB [Suspect]
     Active Substance: RITUXIMAB
     Indication: Central nervous system lymphoma
     Dosage: UNK (1-~C1J1 R-MPV 23/09/2021 J1 RITUXIMAB 375MG/M2 OR 596.25MG)
     Route: 042
     Dates: start: 20210923, end: 20220117
  4. VINCRISTINE SULFATE [Suspect]
     Active Substance: VINCRISTINE SULFATE
     Indication: Central nervous system lymphoma
     Dosage: UNK (1- C1J1 R-MPV 23/09/2021)
     Route: 042
     Dates: start: 20210923, end: 20220104
  5. PROCARBAZINE [Suspect]
     Active Substance: PROCARBAZINE
     Indication: Central nervous system lymphoma
     Dosage: UNK (1- C1J1 R-MPV 23/09/2021)
     Route: 042
     Dates: start: 20210923, end: 20211220

REACTIONS (1)
  - Neurotoxicity [Fatal]

NARRATIVE: CASE EVENT DATE: 20220119
